FAERS Safety Report 15742201 (Version 1)
Quarter: 2018Q4

REPORT INFORMATION
  Report Type: Spontaneous
  Country: US (occurrence: US)
  Receive Date: 20181219
  Receipt Date: 20181219
  Transmission Date: 20190205
  Serious: No
  Sender: FDA-Public Use
  Company Number: None

PATIENT
  Sex: Female

DRUGS (2)
  1. TROSPIUM CHLORIDE ER CAPS [Suspect]
     Active Substance: TROSPIUM CHLORIDE
  2. TROSPIUM CHLORIDE TABS [Suspect]
     Active Substance: TROSPIUM CHLORIDE

REACTIONS (1)
  - Treatment failure [None]
